FAERS Safety Report 8893296 (Version 1)
Quarter: 2012Q4

REPORT INFORMATION
  Report Type: 
  Country: NZ (occurrence: NZ)
  Receive Date: 20121108
  Receipt Date: 20121108
  Transmission Date: 20130627
  Serious: No
  Sender: FDA-Public Use
  Company Number: PHHY2012NZ101895

PATIENT
  Age: 24 Year
  Sex: Male

DRUGS (2)
  1. CLOZARIL [Suspect]
     Dates: start: 20120531
  2. CLOZARIL [Suspect]
     Dosage: 25 mg, UNK
     Dates: start: 20120601

REACTIONS (1)
  - Lymphocyte count increased [Unknown]
